FAERS Safety Report 18205680 (Version 2)
Quarter: 2020Q3

REPORT INFORMATION
  Report Type: Report from Study
  Country: BR (occurrence: BR)
  Receive Date: 20200827
  Receipt Date: 20200901
  Transmission Date: 20201103
  Serious: Yes (Hospitalization, Disabling, Other)
  Sender: FDA-Public Use
  Company Number: NVSC2020BR232383

PATIENT
  Age: 39 Year
  Sex: Female

DRUGS (8)
  1. TORSILAX [Concomitant]
     Active Substance: ACETAMINOPHEN\CAFFEINE\CARISOPRODOL\DICLOFENAC
     Indication: PAIN
     Dosage: UNK
     Route: 065
  2. SULFASALAZINE. [Concomitant]
     Active Substance: SULFASALAZINE
     Indication: SPONDYLITIS
  3. FLUOXETINE [Suspect]
     Active Substance: FLUOXETINE HYDROCHLORIDE
     Indication: PRODUCT USED FOR UNKNOWN INDICATION
     Dosage: UNK
     Route: 065
  4. SULFASALAZINE. [Concomitant]
     Active Substance: SULFASALAZINE
     Indication: GASTRIC ULCER
     Dosage: UNK (STARTED 2 YEARS AGO)
     Route: 065
  5. COSENTYX [Suspect]
     Active Substance: SECUKINUMAB
     Indication: PSORIATIC ARTHROPATHY
     Dosage: 300 MG, UNKNOWN
     Route: 065
     Dates: start: 20190410
  6. CODEINE [Suspect]
     Active Substance: CODEINE
     Indication: FIBROMYALGIA
     Dosage: UNK
     Route: 065
     Dates: start: 2014
  7. PREDNISONE. [Suspect]
     Active Substance: PREDNISONE
     Indication: ANTIPHOSPHOLIPID SYNDROME
     Dosage: UNK
     Route: 065
     Dates: start: 2004
  8. DIAZEPAN [Concomitant]
     Active Substance: DIAZEPAM
     Indication: PRODUCT USED FOR UNKNOWN INDICATION
     Dosage: UNK
     Route: 065

REACTIONS (29)
  - Cough [Recovering/Resolving]
  - Oxygen saturation decreased [Not Recovered/Not Resolved]
  - Pyrexia [Recovered/Resolved]
  - Arthralgia [Not Recovered/Not Resolved]
  - Somnolence [Not Recovered/Not Resolved]
  - Peripheral swelling [Not Recovered/Not Resolved]
  - Nervousness [Unknown]
  - Gastric ulcer [Unknown]
  - Feeling abnormal [Unknown]
  - Pyrexia [Not Recovered/Not Resolved]
  - Blister infected [Recovered/Resolved with Sequelae]
  - Fibromyalgia [Unknown]
  - Abdominal pain upper [Unknown]
  - Abdominal distension [Unknown]
  - Skin erosion [Not Recovered/Not Resolved]
  - Spinal pain [Unknown]
  - Inflammation [Unknown]
  - Oral contusion [Not Recovered/Not Resolved]
  - Oral pain [Not Recovered/Not Resolved]
  - Joint swelling [Unknown]
  - Abdominal discomfort [Unknown]
  - Dyspnoea [Recovered/Resolved with Sequelae]
  - Chest pain [Unknown]
  - Oropharyngeal pain [Recovered/Resolved with Sequelae]
  - Mouth injury [Not Recovered/Not Resolved]
  - Anal haemorrhage [Unknown]
  - Gait inability [Unknown]
  - Gastrointestinal injury [Unknown]
  - Respiratory disorder [Recovered/Resolved with Sequelae]

NARRATIVE: CASE EVENT DATE: 202006
